FAERS Safety Report 14221980 (Version 2)
Quarter: 2017Q4

REPORT INFORMATION
  Report Type: Report from Study
  Country: US (occurrence: US)
  Receive Date: 20171124
  Receipt Date: 20171130
  Transmission Date: 20180321
  Serious: Yes (Hospitalization)
  Sender: FDA-Public Use
  Company Number: PHHY2017US173253

PATIENT
  Age: 18 Year
  Sex: Male
  Weight: 54 kg

DRUGS (14)
  1. ORKAMBI [Concomitant]
     Active Substance: IVACAFTOR\LUMACAFTOR
     Indication: CYSTIC FIBROSIS
     Dosage: 2 DF, BID
     Route: 048
     Dates: start: 20151030
  2. AQUADEKS [Concomitant]
     Active Substance: MINERALS\VITAMINS
     Indication: PANCREATIC FAILURE
     Dosage: UNK UNK, BID (AS SUPPLIED)
     Route: 048
     Dates: start: 20041118
  3. XOPENEX [Concomitant]
     Active Substance: LEVALBUTEROL HYDROCHLORIDE
     Indication: ASTHMA
     Dosage: 0.63 MG, BID (NEBULISATION)
     Route: 055
     Dates: start: 2010
  4. PULMOZYME [Concomitant]
     Active Substance: DORNASE ALFA
     Indication: CYSTIC FIBROSIS
     Dosage: 2.5 MG, QHS
     Route: 055
     Dates: start: 20131029
  5. XOPENEX [Concomitant]
     Active Substance: LEVALBUTEROL HYDROCHLORIDE
     Indication: CYSTIC FIBROSIS
  6. FLOVENT [Concomitant]
     Active Substance: FLUTICASONE PROPIONATE
     Indication: CYSTIC FIBROSIS
  7. ZENPEP [Concomitant]
     Active Substance: PANCRELIPASE AMYLASE\PANCRELIPASE LIPASE\PANCRELIPASE PROTEASE
     Indication: PANCREATIC FAILURE
     Dosage: 25000 U/KG, TID (4 DF WITH MEALS, 2-3 DF WITH SNAKS AND 5 DF WITH NIGHT FEEDS)
     Route: 048
     Dates: start: 2010
  8. PERIACTIN [Concomitant]
     Active Substance: CYPROHEPTADINE HYDROCHLORIDE
     Indication: DECREASED APPETITE
     Dosage: 4 MG, BID (TAKE FOR 3 WEEKS AND OFF FRO ONE WEEK)
     Route: 048
     Dates: start: 20150818
  9. HYPERTONIC SALINE SOLUTION [Concomitant]
     Active Substance: SODIUM CHLORIDE
     Indication: CYSTIC FIBROSIS
     Dosage: 0.28 G, BID
     Route: 055
     Dates: start: 2005
  10. FLOVENT [Concomitant]
     Active Substance: FLUTICASONE PROPIONATE
     Indication: ASTHMA
     Dosage: 220 UG, BID
     Route: 055
     Dates: start: 20160129
  11. PERIACTIN [Concomitant]
     Active Substance: CYPROHEPTADINE HYDROCHLORIDE
     Indication: FAILURE TO THRIVE
  12. TOBI [Suspect]
     Active Substance: TOBRAMYCIN
     Indication: CYSTIC FIBROSIS
     Dosage: 300 MG, BID
     Route: 055
     Dates: start: 20140815
  13. ALBUTEROL HFA [Concomitant]
     Active Substance: ALBUTEROL SULFATE
     Indication: ASTHMA
     Dosage: 8.5 G, Q4H (PRN)
     Route: 055
     Dates: start: 20151030
  14. ALBUTEROL HFA [Concomitant]
     Active Substance: ALBUTEROL SULFATE
     Indication: CYSTIC FIBROSIS

REACTIONS (4)
  - Forced expiratory volume decreased [Unknown]
  - Malnutrition [Not Recovered/Not Resolved]
  - Infective pulmonary exacerbation of cystic fibrosis [Not Recovered/Not Resolved]
  - Blood glucose increased [Unknown]

NARRATIVE: CASE EVENT DATE: 20170516
